FAERS Safety Report 13197728 (Version 2)
Quarter: 2017Q1

REPORT INFORMATION
  Report Type: Spontaneous
  Country: US (occurrence: US)
  Receive Date: 20170208
  Receipt Date: 20170228
  Transmission Date: 20170428
  Serious: Yes (Life-Threatening, Hospitalization, Other)
  Sender: FDA-Public Use
  Company Number: US-BRISTOL-MYERS SQUIBB COMPANY-BMS-2017-010035

PATIENT
  Age: 69 Year
  Sex: Female

DRUGS (1)
  1. ORENCIA [Suspect]
     Active Substance: ABATACEPT
     Indication: RHEUMATOID ARTHRITIS
     Dosage: UNK
     Route: 042
     Dates: start: 200809

REACTIONS (5)
  - Appendicectomy [Unknown]
  - Knee arthroplasty [Unknown]
  - Appendicitis perforated [Unknown]
  - Animal bite [Unknown]
  - Arthralgia [Unknown]

NARRATIVE: CASE EVENT DATE: 20141217
